FAERS Safety Report 24915905 (Version 1)
Quarter: 2025Q1

REPORT INFORMATION
  Report Type: Spontaneous
  Country: NI (occurrence: NI)
  Receive Date: 20250203
  Receipt Date: 20250203
  Transmission Date: 20250409
  Serious: Yes (Hospitalization, Other)
  Sender: PHARMADAX
  Company Number: NI-PDX-000405

PATIENT
  Age: 76 Year
  Sex: Male

DRUGS (3)
  1. METOPROLOL [Suspect]
     Active Substance: METOPROLOL
     Indication: Hypertension
     Dosage: 1/2 TABLET DAILY
     Route: 065
  2. GLYBURIDE\METFORMIN [Suspect]
     Active Substance: GLYBURIDE\METFORMIN
     Indication: Type 2 diabetes mellitus
     Dosage: 500/5 MG
     Route: 065
  3. LEVOTHYROXINE [Suspect]
     Active Substance: LEVOTHYROXINE
     Indication: Product used for unknown indication
     Route: 065

REACTIONS (2)
  - Prosthetic cardiac valve stenosis [Recovered/Resolved]
  - Prosthetic cardiac valve calcification [Recovering/Resolving]
